FAERS Safety Report 9201517 (Version 4)
Quarter: 2013Q2

REPORT INFORMATION
  Report Type: Spontaneous
  Country: US (occurrence: US)
  Receive Date: 20130401
  Receipt Date: 20130628
  Transmission Date: 20140414
  Serious: Yes (Other)
  Sender: FDA-Public Use
  Company Number: US-PFIZER INC-2013100457

PATIENT
  Age: 70 Year
  Sex: Female

DRUGS (20)
  1. CELEBREX [Suspect]
     Indication: RHEUMATOID ARTHRITIS
     Dosage: 200 MG, 1X/DAY
     Route: 048
     Dates: start: 2006
  2. CELEBREX [Suspect]
     Dosage: 200 MG, 1X/DAY
     Route: 048
     Dates: start: 2012
  3. LACLOTION [Concomitant]
     Dosage: TWICE DAILY (12%, APPLY AND RUB IN A THIN FILM TO AFFECTED AREAS)
     Route: 061
  4. CALTRATE 600+D [Concomitant]
     Dosage: 600-400 MG-UNIT,
     Route: 048
  5. DIOVAN HCT [Concomitant]
     Indication: HYPERTENSION
     Dosage: 1 DF, 1X/DAY (VALSARTAN320,HYDROCHLOROTHIAZIDE25 MG)
     Route: 048
  6. ECOTRIN LOW STRENGTH [Concomitant]
     Dosage: 81 MG, DAILY
     Route: 048
  7. EVISTA [Concomitant]
     Dosage: 60 MG 1TABLET, DAILY
     Route: 048
  8. LEXAPRO [Concomitant]
     Dosage: 20 MG, DAILY
     Route: 048
  9. SYNTHROID [Concomitant]
     Dosage: 125 UG
     Route: 048
  10. SYNTHROID [Concomitant]
     Dosage: 100 UG 1 TABLET, 1X/DAY
     Route: 048
  11. TRAMADOL HYDROCHLORIDE [Concomitant]
     Indication: PAIN
     Dosage: 50 MG TABLET; 1-2, Q 6 HRS, AS NEEDED
     Route: 048
  12. VITAMIN D [Concomitant]
     Dosage: 1 DF(1000 UNIT), 2X/DAY
     Route: 048
  13. XANAX [Concomitant]
     Indication: ANXIETY
     Dosage: 0.5 MG
     Route: 048
  14. HYDROXYCHLOROQUINE SULFATE [Concomitant]
     Dosage: 200 MG 1 TABLET, 2X/DAY
     Route: 048
  15. ACIPHEX [Concomitant]
     Dosage: 20 MG 1 TABLET, ONCE DAILY
     Route: 048
  16. CYANOCOBALAMIN/FA/PYRIDOXINE [Concomitant]
     Dosage: 1 DF, 1X/DAY (CYANOCOBALAMIN2MG, FOLIC ACID2.5MG, PYRIDOXINE25MG)
     Route: 048
  17. NORVASC [Concomitant]
     Dosage: 5 MG 1 TABLET, ONCE DAILY
     Route: 048
  18. PLAQUENIL [Concomitant]
     Dosage: UNK
  19. ASA [Concomitant]
     Dosage: UNK
  20. SLOW FE [Concomitant]
     Dosage: 1 DF, 1X/DAY
     Route: 048

REACTIONS (25)
  - Systemic lupus erythematosus [Unknown]
  - Arthropathy [Unknown]
  - Post procedural infection [Recovered/Resolved]
  - Serratia infection [Recovered/Resolved]
  - Staphylococcal infection [Recovered/Resolved]
  - Enterocolitis infectious [Unknown]
  - Clostridium difficile infection [Recovered/Resolved]
  - Haemorrhoidal haemorrhage [Unknown]
  - Drug dependence [Unknown]
  - Haemoglobin decreased [Recovered/Resolved]
  - Breast hyperplasia [Unknown]
  - Gastrooesophageal reflux disease [Unknown]
  - Osteoarthritis [Unknown]
  - Hypercholesterolaemia [Unknown]
  - Hypothyroidism [Unknown]
  - Rheumatoid factor positive [Unknown]
  - Abdominal pain upper [Unknown]
  - Diarrhoea [Unknown]
  - Menopause [Unknown]
  - Pain in extremity [Unknown]
  - Back pain [Unknown]
  - Onychomycosis [Unknown]
  - Headache [Recovered/Resolved]
  - Oral pain [Recovered/Resolved]
  - Pleurisy [Recovering/Resolving]
